FAERS Safety Report 24671845 (Version 1)
Quarter: 2024Q4

REPORT INFORMATION
  Report Type: Other
  Country: CN (occurrence: CN)
  Receive Date: 20241127
  Receipt Date: 20241127
  Transmission Date: 20250115
  Serious: Yes (Life-Threatening)
  Sender: B BRAUN
  Company Number: CN-B.Braun Medical Inc.-2166084

PATIENT
  Age: 50 Year
  Sex: Male

DRUGS (11)
  1. MEROPENEM [Suspect]
     Active Substance: MEROPENEM
     Indication: Sepsis
  2. MEROPENEM [Suspect]
     Active Substance: MEROPENEM
     Indication: Infection
  3. PIPERACILLIN AND TAZOBACTAM [Suspect]
     Active Substance: PIPERACILLIN SODIUM\TAZOBACTAM SODIUM
  4. Potassium reduction [Concomitant]
  5. Sodium correction [Concomitant]
  6. Albumin supplementation [Concomitant]
  7. Antiviral ?therapy [Concomitant]
  8. UNSPECIFIED INGREDIENT [Concomitant]
     Active Substance: UNSPECIFIED INGREDIENT
  9. Jaundice reduction [Concomitant]
  10. Liver protection [Concomitant]
  11. ORNITHINE ASPARTATE [Concomitant]
     Active Substance: ORNITHINE ASPARTATE

REACTIONS (1)
  - Drug ineffective [Unknown]
